FAERS Safety Report 22286829 (Version 1)
Quarter: 2023Q2

REPORT INFORMATION
  Report Type: Spontaneous
  Country: US (occurrence: US)
  Receive Date: 20230505
  Receipt Date: 20230505
  Transmission Date: 20230721
  Serious: No
  Sender: FDA-Public Use
  Company Number: US-009507513-2304USA002809

PATIENT
  Sex: Female

DRUGS (1)
  1. VERQUVO [Suspect]
     Active Substance: VERICIGUAT
     Route: 048

REACTIONS (5)
  - Cough [Unknown]
  - Rhinorrhoea [Unknown]
  - Initial insomnia [Unknown]
  - Nervousness [Unknown]
  - Chest discomfort [Unknown]
